FAERS Safety Report 10958418 (Version 3)
Quarter: 2015Q2

REPORT INFORMATION
  Report Type: Report from Study
  Country: IT (occurrence: IT)
  Receive Date: 20150326
  Receipt Date: 20150430
  Transmission Date: 20150821
  Serious: Yes (Death)
  Sender: FDA-Public Use
  Company Number: IT-ABBVIE-15P-083-1366932-00

PATIENT
  Sex: Female
  Weight: 58 kg

DRUGS (3)
  1. NEUPRO [Concomitant]
     Active Substance: ROTIGOTINE
     Indication: PARKINSON^S DISEASE
     Dosage: 6 MG/DIE(8:00AM, 8:00 PM)
     Route: 062
     Dates: start: 201412, end: 20150319
  2. LEPONEX [Concomitant]
     Active Substance: CLOZAPINE
     Indication: ANXIETY
     Dosage: 25 MG 1/2 TABLET/DIE
     Route: 048
     Dates: start: 201501, end: 20150319
  3. DUODOPA [Suspect]
     Active Substance: CARBIDOPA\LEVODOPA
     Indication: PRODUCT USED FOR UNKNOWN INDICATION
     Route: 065

REACTIONS (1)
  - Cardiac failure [Fatal]

NARRATIVE: CASE EVENT DATE: 20150319
